FAERS Safety Report 10943182 (Version 2)
Quarter: 2015Q2

REPORT INFORMATION
  Report Type: Spontaneous
  Country: US (occurrence: US)
  Receive Date: 20150322
  Receipt Date: 20150524
  Transmission Date: 20150821
  Serious: No
  Sender: FDA-Public Use
  Company Number: US-JNJFOC-20140609833

PATIENT
  Sex: Male
  Weight: 117.94 kg

DRUGS (13)
  1. ISOSORBIDE MONONITRATE. [Concomitant]
     Active Substance: ISOSORBIDE MONONITRATE
  2. LANTUS [Concomitant]
     Active Substance: INSULIN GLARGINE
     Dosage: 900 UNITS EVERY MORNING
     Route: 048
  3. FISH OIL [Concomitant]
     Active Substance: FISH OIL
  4. GABAPENTIN. [Concomitant]
     Active Substance: GABAPENTIN
     Route: 048
  5. TESTOSTERONE CYPIONATE. [Concomitant]
     Active Substance: TESTOSTERONE CYPIONATE
     Route: 030
  6. CLOPIDOGREL BISULFATE. [Concomitant]
     Active Substance: CLOPIDOGREL BISULFATE
     Route: 048
  7. BABY ASPIRIN [Concomitant]
     Active Substance: ASPIRIN
  8. HUMALOG [Concomitant]
     Active Substance: INSULIN LISPRO
     Dosage: 20 UNITS BEFORE MEALS
  9. PRAVASTATIN [Concomitant]
     Active Substance: PRAVASTATIN\PRAVASTATIN SODIUM
  10. RED YEAST RICE EXTRACT [Concomitant]
  11. INVOKANA [Suspect]
     Active Substance: CANAGLIFLOZIN
     Indication: TYPE 2 DIABETES MELLITUS
     Dosage: 30TH OR 31ST
     Route: 048
     Dates: start: 201405
  12. METFORMIN [Concomitant]
     Active Substance: METFORMIN HYDROCHLORIDE
     Route: 048
  13. LISINOPRIL. [Concomitant]
     Active Substance: LISINOPRIL
     Route: 048

REACTIONS (1)
  - Fatigue [Unknown]
